FAERS Safety Report 15241786 (Version 4)
Quarter: 2018Q4

REPORT INFORMATION
  Report Type: Report from Study
  Country: US (occurrence: US)
  Receive Date: 20180805
  Receipt Date: 20181010
  Transmission Date: 20190204
  Serious: No
  Sender: FDA-Public Use
  Company Number: US-AMGEN-USASL2018105493

PATIENT
  Age: 62 Year
  Sex: Female

DRUGS (1)
  1. ENBREL [Suspect]
     Active Substance: ETANERCEPT
     Indication: RHEUMATOID ARTHRITIS
     Dosage: 50 MG, QWK
     Route: 065
     Dates: start: 2018

REACTIONS (15)
  - Gingival bleeding [Recovered/Resolved]
  - Pain [Unknown]
  - Fall [Unknown]
  - Weight increased [Unknown]
  - Urine output decreased [Unknown]
  - Headache [Not Recovered/Not Resolved]
  - Productive cough [Unknown]
  - Increased tendency to bruise [Unknown]
  - Foot fracture [Unknown]
  - Contusion [Unknown]
  - Drug effect delayed [Unknown]
  - Injection site mass [Recovered/Resolved]
  - Generalised oedema [Unknown]
  - Nightmare [Not Recovered/Not Resolved]
  - Insomnia [Not Recovered/Not Resolved]

NARRATIVE: CASE EVENT DATE: 2018
